FAERS Safety Report 8326496-0 (Version None)
Quarter: 2012Q2

REPORT INFORMATION
  Report Type: 
  Country: None (occurrence: None)
  Receive Date: 20120501
  Receipt Date: 20090724
  Transmission Date: 20120825
  Serious: No
  Sender: FDA-Public Use
  Company Number: US-TEVA-2009008958

PATIENT
  Sex: Male

DRUGS (2)
  1. NUVIGIL [Suspect]
     Indication: NARCOLEPSY
  2. NUVIGIL [Suspect]
     Indication: SLEEP APNOEA SYNDROME
     Dosage: 500 MILLIGRAM;
     Route: 048

REACTIONS (3)
  - SOMNOLENCE [None]
  - DRUG PRESCRIBING ERROR [None]
  - BLOOD PRESSURE INCREASED [None]
